FAERS Safety Report 8785104 (Version 7)
Quarter: 2013Q4

REPORT INFORMATION
  Report Type: Report from Study
  Country: JP (occurrence: JP)
  Receive Date: 20120914
  Receipt Date: 20131227
  Transmission Date: 20140711
  Serious: Yes (Other)
  Sender: FDA-Public Use
  Company Number: JP-VERTEX PHARMACEUTICAL INC.-2012-020865

PATIENT
  Age: 68 Year
  Sex: Male

DRUGS (17)
  1. VX-950 (TELAPREVIR) [Suspect]
     Indication: CHRONIC HEPATITIS C
     Dosage: 2250 MG, QD
     Route: 048
     Dates: start: 20120629, end: 20120824
  2. PEGINTERFERON ALFA-2B [Suspect]
     Indication: CHRONIC HEPATITIS C
     Dosage: 1.5 ?G/KG, QW
     Route: 058
     Dates: start: 20120628, end: 20120816
  3. PEGINTERFERON ALFA-2B [Suspect]
     Dosage: 1.5 ?G/KG, QW
     Route: 058
     Dates: start: 20120817, end: 20121123
  4. RIBAVIRIN [Suspect]
     Indication: CHRONIC HEPATITIS C
     Dosage: 600 MG, QD
     Route: 048
     Dates: start: 20120628, end: 20120802
  5. RIBAVIRIN [Suspect]
     Dosage: 200 MG, QD
     Route: 048
     Dates: start: 20120803, end: 20120816
  6. RIBAVIRIN [Suspect]
     Dosage: 600 MG, QOD
     Route: 048
     Dates: start: 20121019, end: 20121025
  7. RIBAVIRIN [Suspect]
     Dosage: 400 MG, QD
     Route: 048
     Dates: start: 20121026, end: 20121123
  8. PARIET [Concomitant]
     Dosage: 10 MG, QD
     Route: 048
  9. PROMAC [Concomitant]
     Dosage: 150 MG, QD
     Route: 048
  10. NU-LOTAN [Concomitant]
     Dosage: 25 MG, QD
     Route: 048
  11. NOVOLIN R [Concomitant]
     Dosage: 26 DF, QD
     Route: 058
  12. LOXONIN [Concomitant]
     Dosage: UNK UNK, PRN
     Route: 048
  13. LOXONIN [Concomitant]
     Dosage: 60 MG, QD/PRN
     Route: 048
  14. LOXONIN [Concomitant]
     Dosage: 60 MG, QD
     Route: 048
  15. MUCOSTA [Concomitant]
     Dosage: UNK UNK, PRN
     Route: 048
  16. MUCOSTA [Concomitant]
     Dosage: 100 MG,QD/ PRN
     Route: 048
  17. MUCOSTA [Concomitant]
     Dosage: 100 MG, QD
     Route: 048

REACTIONS (3)
  - Bronchitis [Recovered/Resolved]
  - Renal impairment [Recovered/Resolved]
  - Anaemia [Recovered/Resolved]
